FAERS Safety Report 5931900-9 (Version None)
Quarter: 2008Q4

REPORT INFORMATION
  Report Type: 
  Country: None (occurrence: None)
  Receive Date: 20081022
  Receipt Date: 20080617
  Transmission Date: 20090506
  Serious: Yes (Death)
  Sender: FDA-Public Use
  Company Number: 2008PL000155

PATIENT
  Age: 21 Year
  Sex: Female

DRUGS (1)
  1. AZATHIOPRINE [Suspect]
     Dosage: 100 MG;

REACTIONS (6)
  - ACUTE MYELOID LEUKAEMIA [None]
  - ENZYME ABNORMALITY [None]
  - FUNGAEMIA [None]
  - RESPIRATORY FAILURE [None]
  - SEPTIC SHOCK [None]
  - TRICHOSPORON INFECTION [None]
